FAERS Safety Report 6542797-0 (Version None)
Quarter: 2010Q1

REPORT INFORMATION
  Report Type: 
  Country: None (occurrence: None)
  Receive Date: 20100114
  Receipt Date: 20100108
  Transmission Date: 20100710
  Serious: Yes (Death)
  Sender: FDA-Public Use
  Company Number: 1000010186

PATIENT
  Age: 2 Month
  Sex: Female

DRUGS (2)
  1. CELEXA [Suspect]
     Dosage: 40 MG (40 MG, 1 IN 1 D), TRANSPLACENTAL
     Route: 064
     Dates: start: 20081201, end: 20090810
  2. TERBUTALINE SULFATE [Suspect]

REACTIONS (3)
  - MATERNAL DRUGS AFFECTING FOETUS [None]
  - SUDDEN INFANT DEATH SYNDROME [None]
  - TREMOR NEONATAL [None]
